FAERS Safety Report 4520679-3 (Version None)
Quarter: 2004Q4

REPORT INFORMATION
  Report Type: 
  Country: None (occurrence: None)
  Receive Date: 20041203
  Receipt Date: 20041118
  Transmission Date: 20050328
  Serious: Yes (Other)
  Sender: FDA-Public Use
  Company Number: 2004-DE-05902GD

PATIENT
  Sex: 0

DRUGS (3)
  1. NEVIRAPINE (NEVIRAPINE) [Suspect]
     Indication: HIV INFECTION
  2. ZIDOVUDINE [Suspect]
     Indication: HIV INFECTION
  3. LAMIVUDINE [Suspect]
     Indication: HIV INFECTION

REACTIONS (3)
  - BLOOD HIV RNA INCREASED [None]
  - DRUG RESISTANCE [None]
  - VIRAL MUTATION IDENTIFIED [None]
